FAERS Safety Report 23030183 (Version 3)
Quarter: 2024Q3

REPORT INFORMATION
  Report Type: Spontaneous
  Country: US (occurrence: US)
  Receive Date: 20231005
  Receipt Date: 20240819
  Transmission Date: 20241017
  Serious: Yes (Hospitalization, Other)
  Sender: ABBVIE
  Company Number: US-ABBVIE-5433820

PATIENT
  Sex: Female

DRUGS (4)
  1. RINVOQ [Suspect]
     Active Substance: UPADACITINIB
     Indication: Product used for unknown indication
     Dosage: DOSE UPPED
     Route: 048
  2. RINVOQ [Suspect]
     Active Substance: UPADACITINIB
     Indication: Product used for unknown indication
     Route: 048
  3. CIBINQO [Concomitant]
     Active Substance: ABROCITINIB
  4. CIBINQO [Concomitant]
     Active Substance: ABROCITINIB
     Dosage: DOSE IS EITHER 2MG OR 20MG
     Route: 048

REACTIONS (13)
  - Gastric bypass [Recovered/Resolved]
  - Condition aggravated [Recovered/Resolved]
  - Feeling hot [Unknown]
  - Pruritus [Unknown]
  - Acne [Unknown]
  - Rash [Unknown]
  - Eczema asteatotic [Not Recovered/Not Resolved]
  - Mass [Unknown]
  - Pruritus [Unknown]
  - Swelling face [Unknown]
  - Erythema [Unknown]
  - Facial pain [Unknown]
  - Cyst [Unknown]

NARRATIVE: CASE EVENT DATE: 20230718
